FAERS Safety Report 8273219-X (Version None)
Quarter: 2012Q2

REPORT INFORMATION
  Report Type: 
  Country: None (occurrence: None)
  Receive Date: 20120411
  Receipt Date: 20120328
  Transmission Date: 20120825
  Serious: Yes (Other)
  Sender: FDA-Public Use
  Company Number: FR-AMGEN-FRASP2012021408

PATIENT
  Age: 21 Year
  Sex: Female

DRUGS (1)
  1. ENBREL [Suspect]
     Indication: PSORIASIS
     Dosage: 2 INJECTIONS PER WEEK
     Dates: start: 20120301, end: 20120326

REACTIONS (10)
  - INJECTION SITE REACTION [None]
  - INJECTION SITE CELLULITIS [None]
  - LYMPH NODE PALPABLE [None]
  - INJECTION SITE INFLAMMATION [None]
  - INJECTION SITE WARMTH [None]
  - ERYSIPELAS [None]
  - INJECTION SITE ERYTHEMA [None]
  - LOSS OF CONSCIOUSNESS [None]
  - CHILLS [None]
  - MALAISE [None]
